FAERS Safety Report 25357696 (Version 2)
Quarter: 2025Q2

REPORT INFORMATION
  Report Type: Spontaneous
  Country: JP (occurrence: JP)
  Receive Date: 20250526
  Receipt Date: 20250602
  Transmission Date: 20250716
  Serious: Yes (Death, Life-Threatening)
  Sender: AMGEN
  Company Number: JP-AMGEN-JPNSP2025100114

PATIENT
  Age: 8 Decade
  Sex: Male

DRUGS (2)
  1. IMDELLTRA [Suspect]
     Active Substance: TARLATAMAB-DLLE
     Indication: Small cell lung cancer
     Route: 040
     Dates: start: 20250514, end: 20250526
  2. LOXOPROFEN SODIUM [Concomitant]
     Active Substance: LOXOPROFEN SODIUM
     Indication: Cancer pain
     Dosage: 60 MILLIGRAM, TID

REACTIONS (3)
  - Small cell lung cancer [Fatal]
  - Hypoxia [Not Recovered/Not Resolved]
  - Pyrexia [Recovered/Resolved]

NARRATIVE: CASE EVENT DATE: 20250514
